FAERS Safety Report 7135646-3 (Version None)
Quarter: 2010Q4

REPORT INFORMATION
  Report Type: 
  Country: None (occurrence: None)
  Receive Date: 20101203
  Receipt Date: 20101124
  Transmission Date: 20110411
  Serious: Yes (Death)
  Sender: FDA-Public Use
  Company Number: US-ROCHE-635043

PATIENT
  Sex: Male

DRUGS (21)
  1. BEVACIZUMAB [Suspect]
     Dosage: 15 MG/KG, DAY 1 EVERY 21 DAYS
     Route: 042
     Dates: start: 20090225, end: 20090429
  2. BEVACIZUMAB [Suspect]
     Dosage: LAST DOSE PRIOR TO SAE: 3 MAY 2009
     Route: 042
     Dates: start: 20090429
  3. TOPOTECAN HCL [Suspect]
     Dosage: 2.3 MG/M2, FREQUENCY :FOR CONSECUTIVE 5 DAYS ON DAY 1-5 EVERY 21 DAYS  LAST DOSE: 3 MAY 2009
     Route: 048
     Dates: start: 20090225, end: 20090503
  4. SALBUTAMOL SULFATE [Concomitant]
     Dates: start: 20090401
  5. MORPHINE [Concomitant]
     Dates: start: 20081009
  6. ALPRAZOLAM [Concomitant]
     Dates: start: 20081009
  7. CALCIPOTRIOL [Concomitant]
  8. DOXYCYCLINE [Concomitant]
  9. AMLODIPINE BESILATE [Concomitant]
  10. VALSARTAN [Concomitant]
  11. FLUTICASONE PROPIONATE [Concomitant]
  12. SALMETEROL XINAFOATE [Concomitant]
  13. DOLASETRON MESYLATE [Concomitant]
  14. GRANISETRON HCL [Concomitant]
  15. PROMETHAZINE [Concomitant]
  16. MACROGOL [Concomitant]
  17. LORATADINE [Concomitant]
  18. LANSOPRAZOLE [Concomitant]
  19. DARBEPOETIN ALFA [Concomitant]
  20. NYSTATIN [Concomitant]
  21. MUPIROCIN CALCIUM [Concomitant]

REACTIONS (4)
  - MENTAL STATUS CHANGES [None]
  - RESPIRATORY ARREST [None]
  - THROMBOCYTOPENIA [None]
  - UPPER GASTROINTESTINAL HAEMORRHAGE [None]
